FAERS Safety Report 4320241-1 (Version None)
Quarter: 2004Q1

REPORT INFORMATION
  Report Type: 
  Country: None (occurrence: None)
  Receive Date: 20040317
  Receipt Date: 20040304
  Transmission Date: 20041129
  Serious: Yes (Other)
  Sender: FDA-Public Use
  Company Number: 2004014605

PATIENT
  Age: 79 Year
  Sex: Female

DRUGS (1)
  1. SERTRALINE  (SERTRALINE) [Suspect]
     Indication: DEPRESSION
     Dosage: 100 MG, ORAL
     Route: 048

REACTIONS (2)
  - BREAST CANCER [None]
  - OESTROGEN RECEPTOR ASSAY POSITIVE [None]
